FAERS Safety Report 4508477-8 (Version None)
Quarter: 2004Q4

REPORT INFORMATION
  Report Type: 
  Country: None (occurrence: None)
  Receive Date: 20041123
  Receipt Date: 20040301
  Transmission Date: 20050328
  Serious: Yes (Disabling)
  Sender: FDA-Public Use
  Company Number: US-GLAXOSMITHKLINE-A0500670A

PATIENT
  Age: 32 Year
  Sex: Male

DRUGS (2)
  1. WELLBUTRIN [Suspect]
     Indication: SCHIZOAFFECTIVE DISORDER
     Dosage: 200MG TWICE PER DAY
     Route: 048
  2. ZYPREXA [Concomitant]
     Dosage: 20MG PER DAY

REACTIONS (1)
  - TREMOR [None]
